FAERS Safety Report 6057974-5 (Version None)
Quarter: 2009Q1

REPORT INFORMATION
  Report Type: 
  Country: None (occurrence: None)
  Receive Date: 20090129
  Receipt Date: 20090128
  Transmission Date: 20090719
  Serious: Yes (Death)
  Sender: FDA-Public Use
  Company Number: US-GILEAD-2009-0019800

PATIENT
  Sex: Female
  Weight: 81.266 kg

DRUGS (15)
  1. LETAIRIS [Suspect]
     Indication: PULMONARY ARTERIAL HYPERTENSION
     Route: 048
     Dates: start: 20071210
  2. FEMARA [Concomitant]
  3. ZOLADEX [Concomitant]
  4. REVATIO [Concomitant]
  5. REMODULIN [Concomitant]
  6. COUMADIN [Concomitant]
  7. OXYGEN [Concomitant]
  8. TORSEMIDE [Concomitant]
  9. SPIRONOLACTONE [Concomitant]
  10. DIGOXIN [Concomitant]
  11. CALCIUM CITRATE [Concomitant]
  12. POTASSIUM CHLORIDE [Concomitant]
  13. SODIUM CHLORIDE [Concomitant]
  14. BL VITAMIN C [Concomitant]
  15. MULTI-VITAMIN [Concomitant]

REACTIONS (1)
  - DEATH [None]
